FAERS Safety Report 6538286-X (Version None)
Quarter: 2010Q1

REPORT INFORMATION
  Report Type: 
  Country: None (occurrence: None)
  Receive Date: 20100112
  Receipt Date: 20100112
  Transmission Date: 20100710
  Serious: Yes (Death)
  Sender: FDA-Public Use
  Company Number: None

PATIENT
  Age: 87 Year
  Sex: Female
  Weight: 54.4316 kg

DRUGS (1)
  1. DICLOFENAC SODIUM [Suspect]
     Indication: OSTEOARTHRITIS
     Dosage: UNSURE UNSURE TOP
     Route: 061
     Dates: start: 20091029, end: 20091115

REACTIONS (3)
  - CHEST PAIN [None]
  - INTESTINAL ISCHAEMIA [None]
  - THROMBOSIS [None]
